FAERS Safety Report 21562666 (Version 1)
Quarter: 2022Q4

REPORT INFORMATION
  Report Type: Report from Study
  Country: JP (occurrence: JP)
  Receive Date: 20221107
  Receipt Date: 20221107
  Transmission Date: 20230113
  Serious: Yes (Hospitalization, Other)
  Sender: FDA-Public Use
  Company Number: JP-RPC01-3103-1101004-20211217-0001SG

PATIENT
  Age: 51 Year
  Sex: Female
  Weight: 55 kg

DRUGS (16)
  1. OZANIMOD [Suspect]
     Active Substance: OZANIMOD
     Indication: Colitis
     Dosage: ONE CAPSULE DAILY
     Route: 048
     Dates: start: 20211206, end: 20211209
  2. OZANIMOD [Suspect]
     Active Substance: OZANIMOD
     Dosage: TWO CAPSULE DAILY
     Route: 048
     Dates: start: 20211210, end: 20211212
  3. OZANIMOD [Suspect]
     Active Substance: OZANIMOD
     Dosage: ONE CAPSULE DAILY
     Route: 048
     Dates: start: 20211213, end: 20211213
  4. 6-MERCAPTPPURINE [Concomitant]
     Indication: Colitis ulcerative
     Dosage: 20 MG X 1 X 1 DAYS
     Route: 048
     Dates: start: 20211215, end: 20211221
  5. BETAHISTINE MESILATE [Concomitant]
     Active Substance: BETAHISTINE MESILATE
     Indication: Hyperventilation
     Dosage: 18 MG X 3 X 1 DAYS
     Route: 048
     Dates: start: 20191218
  6. DIMETHYLPOLYSILOXANE [Concomitant]
     Indication: Colitis ulcerative
     Dosage: 80 MG X 2 X 1 DAYS
     Route: 048
     Dates: start: 20201211
  7. DIMETHYLPOLYSILOXANE [Concomitant]
     Dosage: FREQUENCY TEXT: ONCE?200 MG X ONCE
     Route: 048
     Dates: start: 20211122, end: 20211122
  8. FURSULTIAMINE [Concomitant]
     Active Substance: FURSULTIAMINE
     Indication: Hyperventilation
     Dosage: 50 MG X 2 X 1 DAYS
     Route: 048
     Dates: start: 20191218
  9. LACTOSE [Concomitant]
     Active Substance: LACTOSE
     Indication: Colitis ulcerative
     Dosage: 1 G X 1 X 1 DAYS
     Route: 048
     Dates: start: 20211215, end: 20211221
  10. MIYA-BM FINE GRANULES [Concomitant]
     Indication: Colitis ulcerative
     Dosage: 3 G X 3 X 1 DAYS
     Route: 048
     Dates: start: 20201214
  11. MOSAPRIDE CITRATE [Concomitant]
     Active Substance: MOSAPRIDE CITRATE
     Indication: Colonoscopy
     Dosage: FREQUENCY TEXT: ONCE?5 MG X ONCE
     Route: 048
     Dates: start: 20211122, end: 20211122
  12. POLYETHYLENE GLYCOLS\POTASSIUM CHLORIDE\SODIUM BICARBONATE\SODIUM CHLO [Concomitant]
     Active Substance: POLYETHYLENE GLYCOLS\POTASSIUM CHLORIDE\SODIUM BICARBONATE\SODIUM CHLORIDE\SODIUM SULFATE
     Indication: Colonoscopy
     Dosage: FREQUENCY TEXT: ONCE?137.155 G X ONCE
     Route: 048
     Dates: start: 20211122, end: 20211122
  13. PAROXETINE [Concomitant]
     Active Substance: PAROXETINE
     Indication: Hyperventilation
     Dosage: 25 MG X 1 X 1 DAYS
     Route: 048
     Dates: start: 20190409
  14. SODIUM PICOSULFATE ORAL SOLUTION 0.75% [Concomitant]
     Indication: Colonoscopy
     Dosage: FREQUENCY TEXT: ONCE?10 ML X ONCE
     Route: 048
     Dates: start: 20211121, end: 20211121
  15. VALPROATE SODIUM [Concomitant]
     Active Substance: VALPROATE SODIUM
     Indication: Hyperventilation
     Dosage: 400 MG X 1 X 1 DAYS
     Route: 048
     Dates: start: 20190409, end: 20220201
  16. CALCIUM CHLORIDE\POTASSIUM CHLORIDE\SODIUM CHLORIDE\SODIUM LACTATE [Concomitant]
     Active Substance: CALCIUM CHLORIDE\POTASSIUM CHLORIDE\SODIUM CHLORIDE\SODIUM LACTATE
     Indication: Prophylaxis against dehydration
     Dosage: FREQUENCY TEXT: ONCE?500 ML X ONCE
     Route: 042
     Dates: start: 20211213, end: 20211213

REACTIONS (1)
  - Colitis ulcerative [Recovered/Resolved]

NARRATIVE: CASE EVENT DATE: 20211217
